FAERS Safety Report 24059784 (Version 1)
Quarter: 2024Q3

REPORT INFORMATION
  Report Type: Spontaneous
  Country: SY (occurrence: SY)
  Receive Date: 20240708
  Receipt Date: 20240708
  Transmission Date: 20241016
  Serious: Yes (Hospitalization, Other)
  Sender: STRIDES
  Company Number: None

PATIENT
  Age: 31 Year
  Sex: Male

DRUGS (7)
  1. PREDNISOLONE [Suspect]
     Active Substance: PREDNISOLONE
     Indication: Immunosuppressant drug therapy
     Dosage: 5 MILLIGRAM, QD
     Route: 065
  2. PREDNISOLONE [Suspect]
     Active Substance: PREDNISOLONE
     Indication: Renal transplant
     Dosage: 10 MILLIGRAM, QD
     Route: 065
  3. MYCOPHENOLATE MOFETIL [Suspect]
     Active Substance: MYCOPHENOLATE MOFETIL
     Indication: Immunosuppressant drug therapy
     Dosage: 500 MILLIGRAM, BID, 12 H
     Route: 065
  4. MYCOPHENOLATE MOFETIL [Suspect]
     Active Substance: MYCOPHENOLATE MOFETIL
     Indication: Renal transplant
  5. TACROLIMUS [Suspect]
     Active Substance: TACROLIMUS
     Indication: Immunosuppressant drug therapy
     Dosage: 1 MILLIGRAM, BID, 12 H
     Route: 065
  6. TACROLIMUS [Suspect]
     Active Substance: TACROLIMUS
     Indication: Renal transplant
  7. ATORVASTATIN [Concomitant]
     Active Substance: ATORVASTATIN
     Indication: Product used for unknown indication
     Dosage: 10 MILLIGRAM, QD
     Route: 065

REACTIONS (6)
  - Pneumonitis [Recovered/Resolved]
  - Acidosis [Recovered/Resolved]
  - Disseminated varicella zoster virus infection [Recovered/Resolved]
  - Varicella zoster pneumonia [Recovered/Resolved]
  - Infection reactivation [Recovered/Resolved]
  - Clostridium difficile infection [Recovered/Resolved]
